FAERS Safety Report 5919289-2 (Version None)
Quarter: 2008Q4

REPORT INFORMATION
  Report Type: 
  Country: None (occurrence: None)
  Receive Date: 20081015
  Receipt Date: 20081006
  Transmission Date: 20090506
  Serious: Yes (Other)
  Sender: FDA-Public Use
  Company Number: PHHY2008DE19599

PATIENT
  Sex: Female

DRUGS (3)
  1. AREDIA [Suspect]
     Dosage: EVERY 4 WEEKS
     Route: 042
     Dates: start: 20070801
  2. HERCEPTIN [Suspect]
     Indication: HYPERCALCAEMIA OF MALIGNANCY
  3. GEMCITABINE [Concomitant]

REACTIONS (3)
  - CONJUNCTIVITIS [None]
  - SCLERITIS [None]
  - VISUAL IMPAIRMENT [None]
